FAERS Safety Report 7993898-1 (Version None)
Quarter: 2011Q4

REPORT INFORMATION
  Report Type: 
  Country: None (occurrence: None)
  Receive Date: 20111215
  Receipt Date: 20111208
  Transmission Date: 20120403
  Serious: Yes (Hospitalization)
  Sender: FDA-Public Use
  Company Number: A0957348A

PATIENT
  Age: 71 Year
  Sex: Female

DRUGS (1)
  1. METHYLCELLULOSE (FORMULATION UNKNOWN) (METHYLCELLULOSE) [Suspect]
     Dates: start: 20111201, end: 20111202

REACTIONS (9)
  - HAEMORRHAGE [None]
  - ENTERITIS [None]
  - ABDOMINAL PAIN [None]
  - GASTROINTESTINAL SOUNDS ABNORMAL [None]
  - ADVERSE EVENT [None]
  - HAEMATOCHEZIA [None]
  - COLITIS [None]
  - GASTROINTESTINAL TRACT IRRITATION [None]
  - PAIN [None]
